FAERS Safety Report 6608486-9 (Version None)
Quarter: 2010Q1

REPORT INFORMATION
  Report Type: 
  Country: None (occurrence: None)
  Receive Date: 20100301
  Receipt Date: 20100219
  Transmission Date: 20100710
  Serious: Yes (Other)
  Sender: FDA-Public Use
  Company Number: US-MERCK-1001USA00065

PATIENT
  Age: 59 Year
  Sex: Female
  Weight: 41 kg

DRUGS (1)
  1. JANUVIA [Suspect]
     Indication: TYPE 2 DIABETES MELLITUS
     Route: 048
     Dates: start: 20091228

REACTIONS (3)
  - PANCREATIC CARCINOMA [None]
  - SCLERAL DISCOLOURATION [None]
  - SKIN DISCOLOURATION [None]
